FAERS Safety Report 9152558 (Version 1)
Quarter: 2013Q1

REPORT INFORMATION
  Report Type: Spontaneous
  Country: US (occurrence: US)
  Receive Date: 20130308
  Receipt Date: 20130308
  Transmission Date: 20140127
  Serious: No
  Sender: FDA-Public Use
  Company Number: US-ENDO PHARMACEUTICALS INC.-OPCR20120980

PATIENT
  Age: 46 None
  Sex: Female

DRUGS (3)
  1. OPANA ER [Suspect]
     Indication: PAIN
     Route: 048
     Dates: start: 201204
  2. OPANA [Concomitant]
     Indication: BREAKTHROUGH PAIN
     Route: 048
     Dates: start: 2007
  3. OPANA ER [Concomitant]
     Indication: PAIN
     Route: 048
     Dates: start: 2007, end: 201204

REACTIONS (3)
  - Drug interaction [Unknown]
  - Contusion [Not Recovered/Not Resolved]
  - Drug effect decreased [Not Recovered/Not Resolved]
